FAERS Safety Report 8299985 (Version 2)
Quarter: 2017Q3

REPORT INFORMATION
  Report Type: Spontaneous
  Country: US (occurrence: US)
  Receive Date: 20111219
  Receipt Date: 20170818
  Transmission Date: 20171128
  Serious: No
  Sender: FDA-Public Use
  Company Number: US-ASTRAZENECA-2011SE58740

PATIENT
  Age: 84 Year
  Sex: Female
  Weight: 63.5 kg

DRUGS (9)
  1. COD-LIVER OIL [Concomitant]
     Active Substance: FISH OIL
     Route: 064
  2. CRESTOR [Suspect]
     Active Substance: ROSUVASTATIN CALCIUM
     Indication: BLOOD CHOLESTEROL INCREASED
     Route: 048
  3. HYDROCHLOROTHIAZIDE. [Concomitant]
     Active Substance: HYDROCHLOROTHIAZIDE
     Indication: DYSPEPSIA
     Route: 048
     Dates: start: 2015
  4. CRESTOR [Suspect]
     Active Substance: ROSUVASTATIN CALCIUM
     Indication: BLOOD CHOLESTEROL INCREASED
     Dosage: GENERIC
     Route: 048
     Dates: start: 201707, end: 201708
  5. MULTIVITAMIN [Concomitant]
     Active Substance: VITAMINS
     Indication: FATIGUE
     Dosage: DOSE UNKNOWN
     Route: 048
  6. NEXIUM [Suspect]
     Active Substance: ESOMEPRAZOLE MAGNESIUM
     Indication: DYSPEPSIA
     Dosage: DOSE UNKNOWN
     Route: 048
     Dates: start: 2015, end: 2016
  7. OMEPRAZOLE. [Suspect]
     Active Substance: OMEPRAZOLE
     Indication: DYSPEPSIA
     Route: 048
     Dates: start: 2016, end: 201701
  8. FAMOTIDINE. [Concomitant]
     Active Substance: FAMOTIDINE
     Indication: DYSPEPSIA
     Route: 048
  9. CALCIUM D3 [Concomitant]
     Active Substance: CALCIUM\CHOLECALCIFEROL
     Indication: BONE DISORDER
     Route: 048

REACTIONS (7)
  - Dyspepsia [Unknown]
  - Musculoskeletal discomfort [Recovering/Resolving]
  - Cheilitis [Not Recovered/Not Resolved]
  - Body height decreased [Unknown]
  - Palpitations [Unknown]
  - Osteoporosis [Not Recovered/Not Resolved]
  - Muscle spasms [Recovered/Resolved]

NARRATIVE: CASE EVENT DATE: 2015
